FAERS Safety Report 22068804 (Version 1)
Quarter: 2023Q1

REPORT INFORMATION
  Report Type: Spontaneous
  Country: US (occurrence: US)
  Receive Date: 20230307
  Receipt Date: 20230307
  Transmission Date: 20230418
  Serious: No
  Sender: FDA-Public Use
  Company Number: US-AMNEAL PHARMACEUTICALS-2022-AMRX-01627

PATIENT
  Sex: Male

DRUGS (5)
  1. RYTARY [Suspect]
     Active Substance: CARBIDOPA\LEVODOPA
     Indication: Product used for unknown indication
     Dosage: 2 CAPSULES (61.25/245 MG), TID
     Route: 048
  2. RYTARY [Suspect]
     Active Substance: CARBIDOPA\LEVODOPA
     Dosage: EXTRA CAPSULE OF 245 MG AT BEDTIME
     Route: 048
  3. RYTARY [Suspect]
     Active Substance: CARBIDOPA\LEVODOPA
     Dosage: 1 CAPSULES (LOWER DOSE), TID FOR ABOUT TWO WEEKS
     Route: 048
  4. RYTARY [Suspect]
     Active Substance: CARBIDOPA\LEVODOPA
     Dosage: 1 CAPSULES (36.25-95MG), TID WITH 2 CAPSULES (61.25/245 MG), TID
     Route: 048
  5. RYTARY [Suspect]
     Active Substance: CARBIDOPA\LEVODOPA
     Dosage: 23.75-95MG TAKE 1 CAPSULE OF 23.75-95 MG THREE TIMES A DAY AND TAKE 2 CAPSULES OF 61.25-245MG THREE
     Route: 048

REACTIONS (3)
  - Gait disturbance [Unknown]
  - Dizziness [Unknown]
  - Hypotension [Unknown]
